FAERS Safety Report 15405727 (Version 2)
Quarter: 2018Q4

REPORT INFORMATION
  Report Type: Spontaneous
  Country: CN (occurrence: CN)
  Receive Date: 20180920
  Receipt Date: 20181002
  Transmission Date: 20190204
  Serious: Yes (Death, Life-Threatening, Hospitalization, Other)
  Sender: FDA-Public Use
  Company Number: CN-TAKEDA-2018MPI011455

PATIENT
  Age: 69 Year
  Sex: Female
  Weight: 52 kg

DRUGS (4)
  1. DARATUMUMAB [Suspect]
     Active Substance: DARATUMUMAB
     Indication: PLASMA CELL MYELOMA
     Dosage: 848 MG, 1/WEEK
     Route: 042
     Dates: start: 20180807, end: 20180828
  2. MELPHALAN. [Suspect]
     Active Substance: MELPHALAN
     Indication: PLASMA CELL MYELOMA
     Dosage: 14 MG, QD
     Route: 048
     Dates: start: 20180807, end: 20180809
  3. VELCADE [Suspect]
     Active Substance: BORTEZOMIB
     Indication: PLASMA CELL MYELOMA
     Dosage: 2 MG, 2/WEEK
     Route: 058
     Dates: start: 20180807
  4. PREDNISONE. [Suspect]
     Active Substance: PREDNISONE
     Indication: PLASMA CELL MYELOMA
     Dosage: 90 MG, QD
     Route: 048
     Dates: start: 20180808, end: 20180810

REACTIONS (2)
  - Septic shock [Recovered/Resolved]
  - Lung infection [Fatal]

NARRATIVE: CASE EVENT DATE: 20180903
